FAERS Safety Report 8957596 (Version 1)
Quarter: 2012Q4

REPORT INFORMATION
  Report Type: 
  Country: IT (occurrence: IT)
  Receive Date: 20121211
  Receipt Date: 20121211
  Transmission Date: 20130627
  Serious: Yes (Other)
  Sender: FDA-Public Use
  Company Number: IT-ROXANE LABORATORIES, INC.-2012-RO-02516RO

PATIENT
  Age: 66 Year
  Sex: Female

DRUGS (4)
  1. METHOTREXATE [Suspect]
     Indication: TEMPORAL ARTERITIS
  2. CYCLOPHOSPHAMIDE TABLETS USP [Suspect]
     Indication: TEMPORAL ARTERITIS
     Dosage: 125 mg
     Route: 048
  3. ASPIRIN [Concomitant]
     Indication: ANTIPLATELET THERAPY
  4. MESNA [Concomitant]
     Indication: PROPHYLAXIS
     Route: 048

REACTIONS (1)
  - Neutropenia [Recovered/Resolved]
